FAERS Safety Report 21709140 (Version 2)
Quarter: 2022Q4

REPORT INFORMATION
  Report Type: Spontaneous
  Country: JP (occurrence: JP)
  Receive Date: 20221210
  Receipt Date: 20221226
  Transmission Date: 20230112
  Serious: Yes (Other)
  Sender: FDA-Public Use
  Company Number: JP-Accord-290984

PATIENT
  Age: 30 Year
  Sex: Female

DRUGS (8)
  1. HYDROXYCHLOROQUINE [Suspect]
     Active Substance: HYDROXYCHLOROQUINE
     Indication: Systemic lupus erythematosus
  2. TACROLIMUS [Suspect]
     Active Substance: TACROLIMUS
     Indication: Systemic lupus erythematosus
     Dosage: RESTART TAC
  3. PREDNISOLONE [Suspect]
     Active Substance: PREDNISOLONE
     Indication: Systemic lupus erythematosus
     Dosage: TAPERED TO 10MG/D, INCREASED TO 20MG/D, REDUCTION IN DOSAGE,
  4. INFLIXIMAB [Suspect]
     Active Substance: INFLIXIMAB
     Indication: Acute generalised exanthematous pustulosis
     Dosage: 300 MG/BODY
  5. VANCOMYCIN [Suspect]
     Active Substance: VANCOMYCIN
     Indication: Infectious pleural effusion
  6. CEFEPIME [Suspect]
     Active Substance: CEFEPIME HYDROCHLORIDE
     Indication: Infectious pleural effusion
  7. PREDNISOLONE [Suspect]
     Active Substance: PREDNISOLONE
     Indication: Systemic lupus erythematosus
     Dosage: INCREASED TO 30MG, REDUCE TO 20MG/D, IN 2021, 10MG/D
  8. INFLIXIMAB [Suspect]
     Active Substance: INFLIXIMAB
     Indication: Systemic lupus erythematosus
     Dosage: ONE COURSE OF IFX TREATMENT (300 MG/BODY)

REACTIONS (5)
  - Acute generalised exanthematous pustulosis [Recovered/Resolved]
  - Maternal exposure during pregnancy [Unknown]
  - Staphylococcal infection [Unknown]
  - Product administration interrupted [Unknown]
  - Infectious pleural effusion [Unknown]
